FAERS Safety Report 11662316 (Version 1)
Quarter: 2015Q4

REPORT INFORMATION
  Report Type: Spontaneous
  Country: US (occurrence: US)
  Receive Date: 20151027
  Receipt Date: 20151027
  Transmission Date: 20160304
  Serious: Yes (Other)
  Sender: FDA-Public Use
  Company Number: US-JNJCP-30000309499

PATIENT
  Age: 50 Year
  Sex: Female
  Weight: 91 kg

DRUGS (2)
  1. REMBRANDT INTENSE STAIN BRILLIANT MINT [Suspect]
     Active Substance: SODIUM FLUORIDE
     Dosage: LITTLE BIT MORE THAN A PEA SIZE AMOUNT, THREE TIMES PER DAY
     Route: 004
     Dates: start: 20150912, end: 20151008
  2. UNKNOWN MEDICATIONS [Concomitant]
     Active Substance: UNSPECIFIED INGREDIENT
     Indication: BLOOD PRESSURE ABNORMAL

REACTIONS (1)
  - Tooth fracture [Not Recovered/Not Resolved]

NARRATIVE: CASE EVENT DATE: 20151009
